FAERS Safety Report 10512040 (Version 1)
Quarter: 2014Q4

REPORT INFORMATION
  Report Type: Report from Study
  Country: US (occurrence: US)
  Receive Date: 20141010
  Receipt Date: 20141010
  Transmission Date: 20150528
  Serious: Yes (Hospitalization, Other)
  Sender: FDA-Public Use
  Company Number: US-ABBVIE-14P-163-1292816-00

PATIENT
  Age: 49 Year
  Sex: Male
  Weight: 65.83 kg

DRUGS (6)
  1. NORCO [Concomitant]
     Active Substance: ACETAMINOPHEN\HYDROCODONE BITARTRATE
     Indication: PAIN
     Dosage: 10/325 MG
  2. UNKNOWN PAIN INJECTIONS [Concomitant]
     Indication: NEURALGIA
  3. CREON [Suspect]
     Active Substance: PANCRELIPASE AMYLASE\PANCRELIPASE LIPASE\PANCRELIPASE PROTEASE
     Indication: PANCREATITIS
     Dosage: 3 CAPSULES PER MEAL, 1 CAPSULE PER SNACK.
     Route: 048
     Dates: start: 201201, end: 201303
  4. UNKNOWN NAUSEA MEDICATION [Concomitant]
     Active Substance: UNSPECIFIED INGREDIENT
     Indication: NAUSEA
  5. CREON [Suspect]
     Active Substance: PANCRELIPASE AMYLASE\PANCRELIPASE LIPASE\PANCRELIPASE PROTEASE
     Dosage: 3 CAPSULES PER MEAL, 1 CAPSULE PER SNACK.
     Route: 048
     Dates: start: 20141003
  6. UNKNOWN PAIN INJECTIONS [Concomitant]
     Indication: ABDOMINAL PAIN
     Route: 050
     Dates: start: 2013

REACTIONS (11)
  - Neuralgia [Recovered/Resolved]
  - Gastrointestinal disorder [Recovered/Resolved]
  - Expired product administered [Not Recovered/Not Resolved]
  - Abdominal pain [Unknown]
  - Nausea [Unknown]
  - Nerve injury [Unknown]
  - Abdominal pain [Recovered/Resolved]
  - Muscle injury [Unknown]
  - Pancreatitis acute [Recovered/Resolved]
  - Dysstasia [Recovered/Resolved]
  - Nausea [Recovered/Resolved]

NARRATIVE: CASE EVENT DATE: 2013
